FAERS Safety Report 4975058-1 (Version None)
Quarter: 2006Q2

REPORT INFORMATION
  Report Type: 
  Country: None (occurrence: None)
  Receive Date: 20060418
  Receipt Date: 20060405
  Transmission Date: 20061013
  Serious: Yes (Hospitalization)
  Sender: FDA-Public Use
  Company Number: FR-ROCHE-443872

PATIENT
  Age: 35 Year
  Sex: Female

DRUGS (11)
  1. VALIUM [Suspect]
     Indication: DRUG USE FOR UNKNOWN INDICATION
     Route: 048
     Dates: start: 20060222, end: 20060306
  2. THERALENE [Suspect]
     Indication: DRUG USE FOR UNKNOWN INDICATION
     Route: 048
     Dates: start: 20060223, end: 20060305
  3. CETIRIZINE HCL [Suspect]
     Indication: DRUG USE FOR UNKNOWN INDICATION
     Route: 048
     Dates: start: 20060223, end: 20060306
  4. INIPOMP [Suspect]
     Indication: DRUG USE FOR UNKNOWN INDICATION
     Route: 048
     Dates: start: 20060305, end: 20060305
  5. REYATAZ [Concomitant]
  6. NORVIR [Concomitant]
  7. TRUVADA [Concomitant]
  8. TARDYFERON [Concomitant]
  9. SPECIAFOLDINE [Concomitant]
  10. 1 CONCOMITANT DRUG [Concomitant]
     Dosage: VITAMIN B1 AND B3.
  11. NEXIUM [Concomitant]
     Dates: end: 20060306

REACTIONS (2)
  - HEPATITIS [None]
  - PLATELET COUNT INCREASED [None]
